FAERS Safety Report 6951208-2 (Version None)
Quarter: 2010Q3

REPORT INFORMATION
  Report Type: 
  Country: None (occurrence: None)
  Receive Date: 20100828
  Receipt Date: 20100318
  Transmission Date: 20110219
  Serious: No
  Sender: FDA-Public Use
  Company Number: US-ABBOTT-10P-163-0633299-00

PATIENT
  Sex: Male
  Weight: 81.72 kg

DRUGS (2)
  1. NIASPAN [Suspect]
     Indication: BLOOD CHOLESTEROL INCREASED
     Dosage: AT NIGHT
     Dates: start: 20090901
  2. NIASPAN [Suspect]
     Dosage: AT NIGHT

REACTIONS (1)
  - FLUSHING [None]
